FAERS Safety Report 4539551-8 (Version None)
Quarter: 2004Q4

REPORT INFORMATION
  Report Type: 
  Country: None (occurrence: None)
  Receive Date: 20041222
  Receipt Date: 20041208
  Transmission Date: 20050328
  Serious: Yes (Other)
  Sender: FDA-Public Use
  Company Number: 2004111444

PATIENT
  Age: 71 Year
  Sex: Male

DRUGS (4)
  1. PREDNISOLONE [Suspect]
     Indication: NON-HODGKIN'S LYMPHOMA
     Dosage: (CYCLICAL) UNKNOWN
     Dates: start: 19941216, end: 19950208
  2. VINCRISTINE [Suspect]
     Indication: NON-HODGKIN'S LYMPHOMA
     Dosage: (CYCLICAL), UNKNOWN
     Dates: start: 19941216, end: 19950208
  3. CYCLOPHOSPHAMIDE [Suspect]
     Indication: NON-HODGKIN'S LYMPHOMA
     Dosage: (CYCLICAL),
     Dates: start: 19941216, end: 19950208
  4. CLADRIBINE [Suspect]
     Indication: NON-HODGKIN'S LYMPHOMA
     Dosage: 3 CYCLES
     Dates: start: 19970523, end: 19970724

REACTIONS (1)
  - MYELODYSPLASTIC SYNDROME [None]
